FAERS Safety Report 9137356 (Version 1)
Quarter: 2013Q1

REPORT INFORMATION
  Report Type: Spontaneous
  Country: US (occurrence: US)
  Receive Date: 20130219
  Receipt Date: 20130219
  Transmission Date: 20140127
  Serious: No
  Sender: FDA-Public Use
  Company Number: US-BRISTOL-MYERS SQUIBB COMPANY-16507154

PATIENT
  Age: 63 Year
  Sex: Female

DRUGS (11)
  1. ORENCIA FOR INJ [Suspect]
     Dosage: FIRST SUBQ INF MAR2012; IV INF: 05APR2012
     Route: 042
     Dates: start: 201203
  2. SYNTHROID [Concomitant]
  3. ALLEGRA [Concomitant]
  4. FOLIC ACID [Concomitant]
  5. TRAZODONE HCL [Concomitant]
  6. ZANTAC [Concomitant]
  7. VITAMIN D [Concomitant]
  8. VITAMIN B12 [Concomitant]
  9. IMURAN [Concomitant]
  10. METHOTREXATE [Concomitant]
  11. ESTRADIOL [Concomitant]

REACTIONS (1)
  - Pruritus [Recovering/Resolving]
